FAERS Safety Report 22661819 (Version 9)
Quarter: 2024Q3

REPORT INFORMATION
  Report Type: Report from Study
  Country: US (occurrence: US)
  Receive Date: 20230630
  Receipt Date: 20240701
  Transmission Date: 20241017
  Serious: Yes (Other)
  Sender: AKCEA THERAPEUTICS
  Company Number: US-AKCEA THERAPEUTICS, INC.-2023IS001729

PATIENT

DRUGS (1)
  1. TEGSEDI [Suspect]
     Active Substance: INOTERSEN SODIUM
     Indication: Hereditary neuropathic amyloidosis
     Dosage: 284 MILLIGRAM, QW
     Route: 058
     Dates: start: 20220711

REACTIONS (3)
  - Chronic kidney disease [Unknown]
  - Glomerulonephritis [Unknown]
  - Platelet count increased [Unknown]
